FAERS Safety Report 11170568 (Version 1)
Quarter: 2015Q2

REPORT INFORMATION
  Report Type: Other
  Country: US (occurrence: US)
  Receive Date: 20150608
  Receipt Date: 20150608
  Transmission Date: 20150821
  Serious: Yes (Hospitalization, Other)
  Sender: FDA-Public Use
  Company Number: US-SHIRE-US201504993

PATIENT
  Sex: Female
  Weight: 90.7 kg

DRUGS (9)
  1. CINRYZE [Suspect]
     Active Substance: HUMAN C1-ESTERASE INHIBITOR
     Indication: HEREDITARY ANGIOEDEMA
     Dosage: 2000 UNITS, OTHER, EVERY 3 DAYS
     Route: 042
  2. HEPARIN [Concomitant]
     Active Substance: HEPARIN SODIUM
     Indication: CATHETER MANAGEMENT
     Dosage: 100 UNITS/ML, OTHER, 3-5 ML FLUSH
     Route: 042
     Dates: start: 20150425
  3. SODIUM CHLORIDE. [Concomitant]
     Active Substance: SODIUM CHLORIDE
     Indication: CATHETER MANAGEMENT
     Dosage: 0.9%, OTHER, 1-10 ML FLUSH
     Route: 042
     Dates: start: 20150425
  4. BERINERT [Concomitant]
     Active Substance: HUMAN C1-ESTERASE INHIBITOR
     Indication: HEREDITARY ANGIOEDEMA
     Dosage: 1 DF, AS REQ^D, AS DIRECTED
     Route: 042
     Dates: start: 20141210
  5. FIRAZYR [Suspect]
     Active Substance: ICATIBANT ACETATE
     Indication: HEREDITARY ANGIOEDEMA
     Dosage: 30 MG, AS REQ^D, AS NEEDED
     Route: 058
  6. CINRYZE [Suspect]
     Active Substance: HUMAN C1-ESTERASE INHIBITOR
     Indication: PROPHYLAXIS
  7. STERILE WATER [Concomitant]
     Active Substance: WATER
     Indication: MEDICATION DILUTION
     Dosage: 5 ML, OTHER, AS DIRECTED
     Route: 042
     Dates: start: 20150425
  8. EPIPEN [Concomitant]
     Active Substance: EPINEPHRINE
     Indication: ANAPHYLAXIS PROPHYLAXIS
     Dosage: 0.3 MG, AS REQ^D, AS NEEDED
     Route: 030
     Dates: start: 20150425
  9. KALBITOR [Concomitant]
     Active Substance: ECALLANTIDE
     Indication: HEREDITARY ANGIOEDEMA
     Dosage: 30 MG, AS REQ^D, AS DIRECTED
     Route: 058
     Dates: start: 20141210

REACTIONS (4)
  - Laryngeal oedema [Unknown]
  - Prescribed overdose [Not Recovered/Not Resolved]
  - Hereditary angioedema [Unknown]
  - Endocarditis [Unknown]
